FAERS Safety Report 18576318 (Version 1)
Quarter: 2020Q4

REPORT INFORMATION
  Report Type: Spontaneous
  Country: US (occurrence: US)
  Receive Date: 20201203
  Receipt Date: 20201203
  Transmission Date: 20210114
  Serious: No
  Sender: FDA-Public Use
  Company Number: US-BLUEPRINT MEDICINES CORPORATION-SP-US-2020-001247

PATIENT
  Age: 57 Year
  Sex: Male

DRUGS (1)
  1. AYVAKIT [Suspect]
     Active Substance: AVAPRITINIB
     Indication: GASTROINTESTINAL STROMAL TUMOUR
     Route: 048
     Dates: start: 20181201

REACTIONS (2)
  - Anaemia [Not Recovered/Not Resolved]
  - Hernia pain [Not Recovered/Not Resolved]

NARRATIVE: CASE EVENT DATE: 20200401
